FAERS Safety Report 5205791-8 (Version None)
Quarter: 2007Q1

REPORT INFORMATION
  Report Type: 
  Country: None (occurrence: None)
  Receive Date: 20070111
  Receipt Date: 20070102
  Transmission Date: 20070707
  Serious: Yes (Hospitalization)
  Sender: FDA-Public Use
  Company Number: GB-ROCHE-477278

PATIENT
  Age: 83 Year
  Sex: Female

DRUGS (1)
  1. BONIVA [Suspect]
     Indication: OSTEOPOROSIS
     Route: 048
     Dates: start: 20060718

REACTIONS (5)
  - CHEST DISCOMFORT [None]
  - DIZZINESS [None]
  - FALL [None]
  - ILL-DEFINED DISORDER [None]
  - PARAESTHESIA [None]
